FAERS Safety Report 16561393 (Version 3)
Quarter: 2019Q3

REPORT INFORMATION
  Report Type: Spontaneous
  Country: HU (occurrence: HU)
  Receive Date: 20190711
  Receipt Date: 20190802
  Transmission Date: 20191004
  Serious: Yes (Death, Life-Threatening, Hospitalization, Other)
  Sender: FDA-Public Use
  Company Number: HU-BAUSCH-BL-2019-019320

PATIENT
  Age: 78 Year
  Sex: Male

DRUGS (17)
  1. METRONIDAZOLE. [Suspect]
     Active Substance: METRONIDAZOLE
     Dosage: UNK
  2. AMOXICILLIN;CLAVULANIC ACID [Suspect]
     Active Substance: AMOXICILLIN\CLAVULANIC ACID
     Indication: PROPHYLAXIS
     Route: 065
  3. FOSFOMYCIN [Suspect]
     Active Substance: FOSFOMYCIN
     Indication: PRODUCT USED FOR UNKNOWN INDICATION
     Route: 065
  4. METRONIDAZOLE. [Suspect]
     Active Substance: METRONIDAZOLE
     Indication: PROPHYLAXIS
     Route: 065
  5. SULFAMETHOXAZOLE AND TRIMETHOPRIM [Suspect]
     Active Substance: SULFAMETHOXAZOLE\TRIMETHOPRIM
     Indication: PRODUCT USED FOR UNKNOWN INDICATION
     Route: 065
  6. CILASTATIN SODIUM/IMIPENEM [Suspect]
     Active Substance: CILASTATIN SODIUM\IMIPENEM
     Indication: PRODUCT USED FOR UNKNOWN INDICATION
     Route: 065
  7. MEROPENEM. [Suspect]
     Active Substance: MEROPENEM
     Indication: PRODUCT USED FOR UNKNOWN INDICATION
     Route: 051
  8. GENTAMICIN SULFATE. [Suspect]
     Active Substance: GENTAMICIN SULFATE
     Indication: PSEUDOMONAS INFECTION
     Route: 065
  9. GENTAMICIN SULFATE. [Suspect]
     Active Substance: GENTAMICIN SULFATE
     Indication: ENTEROBACTER INFECTION
  10. PIPERACILLIN SODIUM;TAZOBACTAM SODIUM [Suspect]
     Active Substance: PIPERACILLIN SODIUM\TAZOBACTAM SODIUM
     Indication: PRODUCT USED FOR UNKNOWN INDICATION
     Route: 065
  11. CEFTAZIDIME. [Suspect]
     Active Substance: CEFTAZIDIME
     Indication: ENTEROBACTER INFECTION
     Dosage: (FOR 6 DAYS WITH GENTAMICIN)
     Route: 065
  12. CEFTAZIDIME. [Suspect]
     Active Substance: CEFTAZIDIME
     Indication: PSEUDOMONAS INFECTION
  13. FIDAXOMICIN [Suspect]
     Active Substance: FIDAXOMICIN
     Indication: PRODUCT USED FOR UNKNOWN INDICATION
     Route: 065
  14. VANCOMYCIN [Suspect]
     Active Substance: VANCOMYCIN
     Indication: PRODUCT USED FOR UNKNOWN INDICATION
     Route: 048
  15. CEFUROXIME. [Suspect]
     Active Substance: CEFUROXIME
     Indication: ENTEROBACTER INFECTION
     Route: 065
  16. CEFUROXIME. [Suspect]
     Active Substance: CEFUROXIME
     Indication: ESCHERICHIA INFECTION
  17. CEFTAZIDIME PENTAHYDRATE, AVIBACTAM SODIUM [Suspect]
     Active Substance: AVIBACTAM SODIUM\CEFTAZIDIME
     Indication: PNEUMONIA KLEBSIELLA
     Route: 042
     Dates: start: 20180707, end: 20180713

REACTIONS (15)
  - Pathogen resistance [Fatal]
  - Sepsis [Recovered/Resolved]
  - Drug resistance [Unknown]
  - Chills [Unknown]
  - Pyrexia [Unknown]
  - Diarrhoea [Unknown]
  - Clostridium difficile infection [Recovered/Resolved]
  - Dyspnoea [Unknown]
  - Malaise [Unknown]
  - Hypoxia [Unknown]
  - Gastroenteritis [Unknown]
  - Respiratory failure [Fatal]
  - Septic shock [Fatal]
  - Melaena [Unknown]
  - Chest pain [Unknown]

NARRATIVE: CASE EVENT DATE: 20180718
